FAERS Safety Report 8097979-6 (Version None)
Quarter: 2012Q1

REPORT INFORMATION
  Report Type: 
  Country: None (occurrence: None)
  Receive Date: 20120128
  Receipt Date: 20110816
  Transmission Date: 20120608
  Serious: No
  Sender: FDA-Public Use
  Company Number: US-ABBOTT-11P-163-0846886-00

PATIENT
  Sex: Female
  Weight: 70.37 kg

DRUGS (6)
  1. VITAMIN D [Concomitant]
     Indication: BONE DISORDER
  2. ZOLOFT [Concomitant]
     Indication: DEPRESSION
  3. CALCIUM [Concomitant]
     Indication: PRODUCT USED FOR UNKNOWN INDICATION
  4. PREDNISONE TAB [Concomitant]
     Indication: POLYMYALGIA RHEUMATICA
  5. SIMVASTATIN [Concomitant]
     Indication: BLOOD CHOLESTEROL INCREASED
  6. HUMIRA [Suspect]
     Indication: RHEUMATOID ARTHRITIS
     Dates: start: 20110701

REACTIONS (2)
  - FATIGUE [None]
  - INJECTION SITE PAIN [None]
